FAERS Safety Report 6480373-9 (Version None)
Quarter: 2009Q4

REPORT INFORMATION
  Report Type: 
  Country: None (occurrence: None)
  Receive Date: 20091202
  Receipt Date: 20091118
  Transmission Date: 20100525
  Serious: Yes (Hospitalization)
  Sender: FDA-Public Use
  Company Number: 2009US003929

PATIENT
  Age: 26 Year
  Sex: Female

DRUGS (5)
  1. TACROLIMUS [Suspect]
     Indication: DERMATITIS ATOPIC
     Dosage: 0.03 % D. TOPICAL
     Route: 061
     Dates: start: 19940101, end: 20070101
  2. ADVAIR DISKUS 100/50 [Concomitant]
  3. MULTIVITAMIN [Concomitant]
  4. NASONEX [Concomitant]
  5. ASTELIN (DIPROPHYLINE) [Concomitant]

REACTIONS (2)
  - DRUG EXPOSURE DURING PREGNANCY [None]
  - PREGNANCY [None]
